FAERS Safety Report 18081691 (Version 1)
Quarter: 2020Q3

REPORT INFORMATION
  Report Type: Report from Study
  Country: CA (occurrence: CA)
  Receive Date: 20200728
  Receipt Date: 20200728
  Transmission Date: 20201103
  Serious: Yes (Other)
  Sender: FDA-Public Use
  Company Number: PHHY2019CA029706

PATIENT
  Age: 45 Year
  Sex: Female

DRUGS (4)
  1. PREDNISONE. [Concomitant]
     Active Substance: PREDNISONE
     Indication: PRODUCT USED FOR UNKNOWN INDICATION
     Dosage: 1 DF, UNK
     Route: 065
     Dates: start: 201707, end: 201709
  2. REVOLADE [Suspect]
     Active Substance: ELTROMBOPAG
     Dosage: 25 MG, QD
     Route: 048
     Dates: start: 20190430
  3. REVOLADE [Suspect]
     Active Substance: ELTROMBOPAG
     Indication: IMMUNE THROMBOCYTOPENIA
     Dosage: 25 MG, UNK
     Route: 048
     Dates: start: 20181114, end: 20190213
  4. PREDNISONE. [Concomitant]
     Active Substance: PREDNISONE
     Dosage: UNK
     Route: 065
     Dates: start: 201807

REACTIONS (5)
  - Platelet count decreased [Unknown]
  - Blood bilirubin increased [Unknown]
  - Autoimmune haemolytic anaemia [Not Recovered/Not Resolved]
  - Blood creatinine decreased [Unknown]
  - Yellow skin [Unknown]

NARRATIVE: CASE EVENT DATE: 20181227
